FAERS Safety Report 9041820 (Version 1)
Quarter: 2013Q1

REPORT INFORMATION
  Report Type: Report from Study
  Country: US (occurrence: US)
  Receive Date: 20130129
  Receipt Date: 20130129
  Transmission Date: 20140127
  Serious: Yes (Other)
  Sender: FDA-Public Use
  Company Number: US-ABBOTT-12P-163-0895228-00

PATIENT
  Age: 68 None
  Sex: Female
  Weight: 58.11 kg

DRUGS (10)
  1. HUMIRA 40 MG/0.8 ML PEN [Suspect]
     Indication: CROHN^S DISEASE
     Dates: start: 2008, end: 2010
  2. HUMIRA 40 MG/0.8 ML PEN [Suspect]
     Indication: ARTHRITIS ENTEROPATHIC
  3. METHOTREXATE [Concomitant]
     Indication: PRODUCT USED FOR UNKNOWN INDICATION
  4. PENTASA [Concomitant]
     Indication: PRODUCT USED FOR UNKNOWN INDICATION
     Dosage: SWITCHES BETWEEN PENTASA AND LIALDA
  5. LIALDA [Concomitant]
     Indication: CROHN^S DISEASE
     Dosage: SWITCHES BETWEEN PENTASA AND LIALDA
  6. PAROXETINE [Concomitant]
     Indication: ANXIETY
  7. LEVOTHYROXINE [Concomitant]
     Indication: HYPOTHYROIDISM
  8. FOLIC ACID [Concomitant]
     Indication: PRODUCT USED FOR UNKNOWN INDICATION
  9. IRON TABLET SLOW RELEASE [Concomitant]
     Indication: PRODUCT USED FOR UNKNOWN INDICATION
  10. CETIRIZINE [Concomitant]
     Indication: HYPERSENSITIVITY

REACTIONS (6)
  - Knee operation [Unknown]
  - Expired drug administered [Not Recovered/Not Resolved]
  - Expired drug administered [Not Recovered/Not Resolved]
  - Influenza like illness [Not Recovered/Not Resolved]
  - Feeling abnormal [Not Recovered/Not Resolved]
  - Feeling abnormal [Not Recovered/Not Resolved]
